FAERS Safety Report 5738360-1 (Version None)
Quarter: 2008Q2

REPORT INFORMATION
  Report Type: 
  Country: None (occurrence: None)
  Receive Date: 20080513
  Receipt Date: 20080506
  Transmission Date: 20081010
  Serious: Yes (Other)
  Sender: FDA-Public Use
  Company Number: 2008006855

PATIENT
  Age: 60 Year
  Sex: Female
  Weight: 70.3075 kg

DRUGS (2)
  1. COOL MINT LISTERINE POCKETPAKS (NO ACTIVE INGREDIENT) [Suspect]
     Indication: NASOPHARYNGITIS
     Dosage: 6 STRIPS PER DAY, ORAL
     Route: 048
     Dates: start: 20070215, end: 20070217
  2. MULTI-VITAMINS [Concomitant]

REACTIONS (2)
  - ORAL DISCOMFORT [None]
  - ORAL MUCOSAL EXFOLIATION [None]
